FAERS Safety Report 25161006 (Version 2)
Quarter: 2025Q2

REPORT INFORMATION
  Report Type: Spontaneous
  Country: CA (occurrence: CA)
  Receive Date: 20250404
  Receipt Date: 20250408
  Transmission Date: 20250717
  Serious: Yes (Death, Hospitalization, Other)
  Sender: TERSERA THERAPEUTICS
  Company Number: CA-AstraZeneca-CH-00833182A

PATIENT

DRUGS (12)
  1. GOSERELIN [Suspect]
     Active Substance: GOSERELIN
     Indication: Product used for unknown indication
     Route: 058
  2. ZOLADEX [Suspect]
     Active Substance: GOSERELIN ACETATE
     Indication: Product used for unknown indication
     Route: 065
  3. NOLVADEX [Suspect]
     Active Substance: TAMOXIFEN CITRATE
     Indication: Product used for unknown indication
     Route: 065
     Dates: start: 2019
  4. NOLVADEX [Suspect]
     Active Substance: TAMOXIFEN CITRATE
     Route: 065
     Dates: start: 2019
  5. NOLVADEX [Suspect]
     Active Substance: TAMOXIFEN CITRATE
     Route: 065
     Dates: start: 2019
  6. NOLVADEX [Suspect]
     Active Substance: TAMOXIFEN CITRATE
     Route: 065
     Dates: start: 2019
  7. FASLODEX [Suspect]
     Active Substance: FULVESTRANT
     Indication: Product used for unknown indication
     Route: 065
  8. PARAPLATIN [Concomitant]
     Active Substance: CARBOPLATIN
     Indication: Product used for unknown indication
     Route: 065
  9. TAXOL [Concomitant]
     Active Substance: PACLITAXEL
     Indication: Product used for unknown indication
     Route: 065
  10. IBRANCE [Concomitant]
     Active Substance: PALBOCICLIB
     Indication: Product used for unknown indication
     Route: 065
  11. TESETAXEL [Concomitant]
     Active Substance: TESETAXEL
     Indication: Product used for unknown indication
     Route: 065
  12. XELODA [Concomitant]
     Active Substance: CAPECITABINE
     Indication: Product used for unknown indication
     Route: 065

REACTIONS (15)
  - Adverse drug reaction [Fatal]
  - Death [Fatal]
  - Skeletal injury [Unknown]
  - Metastases to eye [Unknown]
  - Mucosal inflammation [Unknown]
  - Hepatic neoplasm [Unknown]
  - Hormone receptor positive HER2 negative breast cancer [Unknown]
  - Bone cancer [Unknown]
  - Neutropenia [Unknown]
  - Hepatic enzyme abnormal [Unknown]
  - Liver disorder [Unknown]
  - Dyspnoea [Unknown]
  - Tachycardia [Unknown]
  - Paraesthesia [Unknown]
  - Suspected counterfeit product [Unknown]

NARRATIVE: CASE EVENT DATE: 20240101
